FAERS Safety Report 10153404 (Version 1)
Quarter: 2014Q2

REPORT INFORMATION
  Report Type: Spontaneous
  Country: US (occurrence: US)
  Receive Date: 20140505
  Receipt Date: 20140505
  Transmission Date: 20141212
  Serious: No
  Sender: FDA-Public Use
  Company Number: US-ASTRAZENECA-2014SE16495

PATIENT
  Sex: Male

DRUGS (1)
  1. PRILOSEC (UNSPECIFIED) [Suspect]
     Route: 048

REACTIONS (6)
  - Skin odour abnormal [Unknown]
  - Eye irritation [Unknown]
  - Nasal discomfort [Unknown]
  - Hyperchlorhydria [Unknown]
  - Glossodynia [Unknown]
  - Oral discomfort [Unknown]
